FAERS Safety Report 20343806 (Version 3)
Quarter: 2022Q1

REPORT INFORMATION
  Report Type: Spontaneous
  Country: US (occurrence: US)
  Receive Date: 20220118
  Receipt Date: 20220121
  Transmission Date: 20220423
  Serious: Yes (Other)
  Sender: FDA-Public Use
  Company Number: US-NOVARTISTESTPH-NVSC2022US008832

PATIENT

DRUGS (1)
  1. ZOFRAN [Suspect]
     Active Substance: ONDANSETRON HYDROCHLORIDE
     Indication: Foetal exposure during pregnancy
     Dosage: MOTHER DOSE: UNK
     Route: 064

REACTIONS (2)
  - Injury [Unknown]
  - Foetal exposure during pregnancy [Unknown]
